FAERS Safety Report 5819560-9 (Version None)
Quarter: 2008Q3

REPORT INFORMATION
  Report Type: 
  Country: None (occurrence: None)
  Receive Date: 20080723
  Receipt Date: 20080717
  Transmission Date: 20090109
  Serious: Yes (Hospitalization, Other)
  Sender: FDA-Public Use
  Company Number: BR-ALLERGAN-0807693US

PATIENT
  Sex: Female

DRUGS (3)
  1. ZYMAR [Suspect]
     Indication: POSTOPERATIVE CARE
     Dosage: 1 GTT, Q6HR
     Route: 047
     Dates: start: 20080606, end: 20080609
  2. ATENSINA [Suspect]
     Indication: HYPERTENSION
  3. PRED FORTE [Concomitant]
     Indication: POSTOPERATIVE CARE
     Route: 047
     Dates: start: 20080606

REACTIONS (3)
  - AMNESIA [None]
  - DIZZINESS [None]
  - HALLUCINATION [None]
